FAERS Safety Report 20606726 (Version 1)
Quarter: 2022Q1

REPORT INFORMATION
  Report Type: Spontaneous
  Country: CN (occurrence: CN)
  Receive Date: 20220317
  Receipt Date: 20220317
  Transmission Date: 20220423
  Serious: Yes (Other)
  Sender: FDA-Public Use
  Company Number: CN-NOVARTISPH-NVSC2022CN059022

PATIENT
  Age: 14 Year
  Sex: Female

DRUGS (2)
  1. CYCLOSPORINE [Suspect]
     Active Substance: CYCLOSPORINE
     Indication: Prophylaxis
     Dosage: 110 MG, QD
     Route: 042
     Dates: start: 20220223, end: 20220301
  2. SODIUM CHLORIDE [Concomitant]
     Active Substance: SODIUM CHLORIDE
     Indication: Solvent sensitivity
     Dosage: 20 ML, QD
     Route: 042
     Dates: start: 20220223, end: 20220301

REACTIONS (1)
  - Drug level abnormal [Recovering/Resolving]

NARRATIVE: CASE EVENT DATE: 20220228
